FAERS Safety Report 17136167 (Version 1)
Quarter: 2019Q4

REPORT INFORMATION
  Report Type: Spontaneous
  Country: US (occurrence: US)
  Receive Date: 20191118
  Receipt Date: 20191118
  Transmission Date: 20200122
  Serious: Yes (Hospitalization)
  Sender: FDA-Public Use
  Company Number: None

PATIENT
  Age: 69 Year
  Sex: Female

DRUGS (1)
  1. IMATINIB MES TAB 400MG* [Suspect]
     Active Substance: IMATINIB
     Route: 048
     Dates: start: 201911

REACTIONS (3)
  - Joint lock [None]
  - Flushing [None]
  - Feeling cold [None]

NARRATIVE: CASE EVENT DATE: 20191111
